FAERS Safety Report 24209426 (Version 1)
Quarter: 2024Q3

REPORT INFORMATION
  Report Type: Spontaneous
  Country: JP (occurrence: JP)
  Receive Date: 20240814
  Receipt Date: 20240814
  Transmission Date: 20241016
  Serious: Yes (Other)
  Sender: RANBAXY
  Company Number: JP-SUN PHARMACEUTICAL INDUSTRIES LTD-2024R1-459120

PATIENT
  Age: 21 Year
  Sex: Female

DRUGS (1)
  1. GUANFACINE [Suspect]
     Active Substance: GUANFACINE
     Indication: Product used for unknown indication
     Dosage: 3 MILLIGRAM/DAY
     Route: 065

REACTIONS (6)
  - Toxicity to various agents [Unknown]
  - Electrocardiogram QT prolonged [Unknown]
  - Electrocardiogram T wave abnormal [Unknown]
  - Drug level above therapeutic [Unknown]
  - Hypotension [Unknown]
  - Bradycardia [Unknown]
